FAERS Safety Report 8235961-6 (Version None)
Quarter: 2012Q1

REPORT INFORMATION
  Report Type: 
  Country: None (occurrence: None)
  Receive Date: 20120326
  Receipt Date: 20120316
  Transmission Date: 20120608
  Serious: Yes (Hospitalization)
  Sender: FDA-Public Use
  Company Number: DK-ROCHE-1049692

PATIENT
  Sex: Male

DRUGS (14)
  1. PREDNISONE TAB [Suspect]
     Route: 048
     Dates: start: 20110905
  2. CYCLOPHOSPHAMIDE [Suspect]
     Route: 042
     Dates: start: 20110905
  3. DOXORUBICIN HYDROCHLORIDE [Suspect]
     Route: 042
     Dates: start: 20110905
  4. VINCRISTINE [Suspect]
     Route: 042
     Dates: start: 20110905
  5. WARFARIN SODIUM [Suspect]
     Indication: DEEP VEIN THROMBOSIS
     Route: 048
     Dates: start: 20111205
  6. MABTHERA [Suspect]
     Indication: MALIGNANT LYMPHOID NEOPLASM
     Route: 042
     Dates: start: 20110822
  7. FILGRASTIM [Suspect]
     Indication: MALIGNANT LYMPHOID NEOPLASM
     Route: 042
     Dates: start: 20110823
  8. MABTHERA [Suspect]
     Route: 042
     Dates: start: 20120123
  9. DOXORUBICIN HYDROCHLORIDE [Suspect]
     Indication: MALIGNANT LYMPHOID NEOPLASM
     Route: 042
     Dates: start: 20110822
  10. FILGRASTIM [Suspect]
     Route: 042
     Dates: start: 20110906
  11. MABTHERA [Suspect]
     Route: 042
     Dates: start: 20110905
  12. PREDNISONE TAB [Suspect]
     Indication: MALIGNANT LYMPHOID NEOPLASM
     Route: 048
     Dates: start: 20110822
  13. CYCLOPHOSPHAMIDE [Suspect]
     Indication: MALIGNANT LYMPHOID NEOPLASM
     Route: 042
     Dates: start: 20110822
  14. VINCRISTINE [Suspect]
     Indication: MALIGNANT LYMPHOID NEOPLASM
     Route: 042
     Dates: start: 20110822

REACTIONS (1)
  - GASTRIC ULCER HAEMORRHAGE [None]
